FAERS Safety Report 5770252-4 (Version None)
Quarter: 2008Q2

REPORT INFORMATION
  Report Type: 
  Country: None (occurrence: None)
  Receive Date: 20080613
  Receipt Date: 20080428
  Transmission Date: 20081010
  Serious: No
  Sender: FDA-Public Use
  Company Number: US-ABBOTT-08P-163-0449561-00

PATIENT
  Sex: Female
  Weight: 95.45 kg

DRUGS (7)
  1. HUMIRA [Suspect]
     Indication: CROHN'S DISEASE
     Dosage: LOADING DOSE
     Route: 058
     Dates: start: 20080326, end: 20080326
  2. HUMIRA [Suspect]
     Route: 058
  3. ASULFADINE [Concomitant]
     Indication: SUPPLEMENTATION THERAPY
     Route: 048
  4. FOLIC ACID [Concomitant]
     Indication: VITAMIN SUPPLEMENTATION
     Route: 048
  5. ESOMEPRAZOLE MAGNESIUM [Concomitant]
     Indication: GASTROOESOPHAGEAL REFLUX DISEASE
     Route: 048
  6. CALCIUM [Concomitant]
     Indication: MINERAL SUPPLEMENTATION
     Route: 048
  7. FENOFIBRATE [Concomitant]
     Indication: LIPIDS INCREASED
     Route: 048

REACTIONS (1)
  - HERPES ZOSTER [None]
